FAERS Safety Report 19877631 (Version 1)
Quarter: 2021Q3

REPORT INFORMATION
  Report Type: Spontaneous
  Country: US (occurrence: US)
  Receive Date: 20210923
  Receipt Date: 20210923
  Transmission Date: 20211014
  Serious: No
  Sender: FDA-Public Use
  Company Number: None

PATIENT
  Age: 62 Year
  Sex: Male
  Weight: 80.1 kg

DRUGS (1)
  1. TIROFIBAN [Suspect]
     Active Substance: TIROFIBAN
     Indication: STENT PLACEMENT
     Route: 041
     Dates: start: 20210911, end: 20210912

REACTIONS (1)
  - Thrombocytopenia [None]

NARRATIVE: CASE EVENT DATE: 20210912
